FAERS Safety Report 14666081 (Version 4)
Quarter: 2018Q3

REPORT INFORMATION
  Report Type: Spontaneous
  Country: US (occurrence: US)
  Receive Date: 20180321
  Receipt Date: 20180910
  Transmission Date: 20181010
  Serious: No
  Sender: FDA-Public Use
  Company Number: US-ELI_LILLY_AND_COMPANY-US201803006273

PATIENT
  Age: 80 Year
  Sex: Female

DRUGS (5)
  1. AMBRISENTAN [Suspect]
     Active Substance: AMBRISENTAN
     Dosage: 5 MG, DAILY
     Route: 065
  2. ADCIRCA [Suspect]
     Active Substance: TADALAFIL
     Dosage: UNK, UNKNOWN
     Route: 065
  3. AMBRISENTAN [Suspect]
     Active Substance: AMBRISENTAN
     Dosage: 10 MG, DAILY
     Route: 065
     Dates: start: 20171204
  4. AMBRISENTAN [Suspect]
     Active Substance: AMBRISENTAN
     Indication: PRODUCT USED FOR UNKNOWN INDICATION
     Dosage: UNK, UNKNOWN
     Route: 065
  5. ADCIRCA [Suspect]
     Active Substance: TADALAFIL
     Indication: PRODUCT USED FOR UNKNOWN INDICATION
     Dosage: UNK, UNKNOWN
     Route: 065

REACTIONS (13)
  - Nasal congestion [Not Recovered/Not Resolved]
  - Dyspnoea [Not Recovered/Not Resolved]
  - Contusion [Not Recovered/Not Resolved]
  - Peripheral swelling [Not Recovered/Not Resolved]
  - Gastrooesophageal reflux disease [Not Recovered/Not Resolved]
  - Dyspnoea exertional [Not Recovered/Not Resolved]
  - Urinary incontinence [Not Recovered/Not Resolved]
  - Cough [Unknown]
  - Constipation [Not Recovered/Not Resolved]
  - Ill-defined disorder [Not Recovered/Not Resolved]
  - Headache [Unknown]
  - Gait disturbance [Not Recovered/Not Resolved]
  - Fatigue [Not Recovered/Not Resolved]
